FAERS Safety Report 17818053 (Version 1)
Quarter: 2020Q2

REPORT INFORMATION
  Report Type: Spontaneous
  Country: CA (occurrence: CA)
  Receive Date: 20200522
  Receipt Date: 20200522
  Transmission Date: 20200714
  Serious: Yes (Other)
  Sender: FDA-Public Use
  Company Number: CA-SAMSUNG BIOEPIS-SB-2020-17317

PATIENT
  Age: 20 Year

DRUGS (1)
  1. INFLIXIMAB [Suspect]
     Active Substance: INFLIXIMAB
     Indication: COLITIS ULCERATIVE
     Route: 042

REACTIONS (6)
  - Body temperature fluctuation [Unknown]
  - Haematochezia [Unknown]
  - Abdominal pain [Unknown]
  - Off label use [Unknown]
  - Blood pressure fluctuation [Unknown]
  - Condition aggravated [Unknown]
